FAERS Safety Report 4377093-3 (Version None)
Quarter: 2004Q2

REPORT INFORMATION
  Report Type: 
  Country: None (occurrence: None)
  Receive Date: 20040608
  Receipt Date: 20040601
  Transmission Date: 20050107
  Serious: Yes (Death)
  Sender: FDA-Public Use
  Company Number: 8125

PATIENT
  Age: 8 Year
  Sex: Male

DRUGS (5)
  1. METHOTREXATE [Suspect]
     Indication: GRAFT VERSUS HOST DISEASE
     Dosage: 10 MG ONCE IA
     Route: 013
  2. CYCLOSPORINE [Concomitant]
  3. METHYLPREDNISOLONE [Concomitant]
  4. ORTHOCLONE MONOCLONAL ANTI-T-CELL ANTIBODY [Concomitant]
  5. FOLIC ACID [Concomitant]

REACTIONS (6)
  - ANAEMIA [None]
  - DRUG LEVEL INCREASED [None]
  - HAEMODIALYSIS [None]
  - NEUTROPENIA [None]
  - SEPSIS [None]
  - THROMBOCYTOPENIA [None]
